FAERS Safety Report 22103738 (Version 1)
Quarter: 2023Q1

REPORT INFORMATION
  Report Type: Spontaneous
  Country: US (occurrence: None)
  Receive Date: 20230315
  Receipt Date: 20230315
  Transmission Date: 20230418
  Serious: No
  Sender: FDA-Public Use
  Company Number: None

PATIENT
  Age: 31 Year
  Sex: Female

DRUGS (4)
  1. RINVOQ [Suspect]
     Active Substance: UPADACITINIB
     Indication: Spinal osteoarthritis
     Dosage: FREQUENCY : DAILY;?
     Route: 048
     Dates: start: 202302
  2. RINVOQ [Suspect]
     Active Substance: UPADACITINIB
     Indication: Juvenile idiopathic arthritis
  3. RINVOQ [Suspect]
     Active Substance: UPADACITINIB
     Indication: Rheumatoid arthritis
  4. RINVOQ [Suspect]
     Active Substance: UPADACITINIB
     Indication: Psoriatic arthropathy

REACTIONS (1)
  - Ear infection [None]
